FAERS Safety Report 21146730 (Version 1)
Quarter: 2022Q3

REPORT INFORMATION
  Report Type: Spontaneous
  Country: US (occurrence: None)
  Receive Date: 20220728
  Receipt Date: 20220728
  Transmission Date: 20221027
  Serious: Yes (Hospitalization)
  Sender: FDA-Public Use
  Company Number: None

PATIENT
  Sex: Male

DRUGS (1)
  1. TACROLIMUS [Suspect]
     Active Substance: TACROLIMUS
     Indication: Renal transplant
     Dosage: TAKE 4 CAPSULES (4 MG) BY MOUTH EVERY MORNING AND 3 CAPSULES (3 MG) EVERY EVENING.
     Route: 048
     Dates: start: 20200128

REACTIONS (1)
  - Dialysis [None]
